FAERS Safety Report 7901943-4 (Version None)
Quarter: 2011Q4

REPORT INFORMATION
  Report Type: 
  Country: None (occurrence: None)
  Receive Date: 20111108
  Receipt Date: 20111028
  Transmission Date: 20120403
  Serious: Yes (Other)
  Sender: FDA-Public Use
  Company Number: ES-SANOFI-AVENTIS-2011SA071012

PATIENT
  Age: 82 Year
  Sex: Male

DRUGS (6)
  1. ALL OTHER THERAPEUTIC PRODUCTS [Concomitant]
     Indication: DEEP VEIN THROMBOSIS
     Route: 058
     Dates: start: 20110620
  2. PRAVASTATIN SODIUM [Concomitant]
     Route: 048
  3. UROLOSIN [Concomitant]
     Route: 048
  4. ASPIRIN [Concomitant]
     Indication: CARDIOVASCULAR EVENT PROPHYLAXIS
     Route: 048
     Dates: start: 20101201
  5. RILUTEK [Suspect]
     Indication: AMYOTROPHIC LATERAL SCLEROSIS
     Route: 048
     Dates: start: 20110101, end: 20110705
  6. OMEPRAZOLE [Concomitant]
     Route: 048

REACTIONS (1)
  - AGRANULOCYTOSIS [None]
